FAERS Safety Report 7684789-4 (Version None)
Quarter: 2011Q3

REPORT INFORMATION
  Report Type: 
  Country: None (occurrence: None)
  Receive Date: 20110810
  Receipt Date: 20110728
  Transmission Date: 20111222
  Serious: Yes (Death, Hospitalization)
  Sender: FDA-Public Use
  Company Number: 2011MA010750

PATIENT
  Age: 67 Year
  Sex: Female
  Weight: 93.441 kg

DRUGS (12)
  1. DIGOXIN [Suspect]
     Indication: PRODUCT USED FOR UNKNOWN INDICATION
     Dosage: .125 MG; QD
     Dates: start: 20031201
  2. TYLENOL-500 [Concomitant]
  3. GEODON [Concomitant]
  4. METFORMIN HYDROCHLORIDE [Concomitant]
  5. ASPIRIN [Concomitant]
  6. ROSUVASTATIN [Concomitant]
  7. DETROL [Concomitant]
  8. PIOGLITAZONE [Concomitant]
  9. METFORMAIN [Concomitant]
  10. LISINOPRIL [Concomitant]
  11. LASIX [Concomitant]
  12. KLOR-CON [Concomitant]

REACTIONS (43)
  - ECONOMIC PROBLEM [None]
  - MITRAL VALVE CALCIFICATION [None]
  - DYSPNOEA [None]
  - PALATAL DISORDER [None]
  - EXCORIATION [None]
  - ABDOMINAL BRUIT [None]
  - MUSCLE SPASMS [None]
  - MYOCARDIAL INFARCTION [None]
  - VISION BLURRED [None]
  - URGE INCONTINENCE [None]
  - LEFT ATRIAL DILATATION [None]
  - CARDIAC MURMUR [None]
  - ESCHERICHIA URINARY TRACT INFECTION [None]
  - MITRAL VALVE INCOMPETENCE [None]
  - LUNG DISORDER [None]
  - ULNA FRACTURE [None]
  - ROAD TRAFFIC ACCIDENT [None]
  - OEDEMA PERIPHERAL [None]
  - AORTIC VALVE CALCIFICATION [None]
  - WEIGHT DECREASED [None]
  - PHARYNGEAL DISORDER [None]
  - BONE FRAGMENTATION [None]
  - MULTIPLE INJURIES [None]
  - CARDIOACTIVE DRUG LEVEL DECREASED [None]
  - HYPERLIPIDAEMIA [None]
  - CAROTID BRUIT [None]
  - PROTEIN TOTAL INCREASED [None]
  - GLOBULINS INCREASED [None]
  - TEMPOROMANDIBULAR JOINT SYNDROME [None]
  - PRESSURE OF SPEECH [None]
  - OBSESSIVE-COMPULSIVE DISORDER [None]
  - PLEURAL FIBROSIS [None]
  - PLEURAL EFFUSION [None]
  - CARDIAC FAILURE CONGESTIVE [None]
  - BIPOLAR DISORDER [None]
  - PULMONARY CONGESTION [None]
  - BLOOD GLUCOSE INCREASED [None]
  - DIABETIC NEUROPATHY [None]
  - ARRHYTHMIA [None]
  - RADIUS FRACTURE [None]
  - CARDIOMEGALY [None]
  - DIZZINESS [None]
  - SLEEP DISORDER [None]
